FAERS Safety Report 11294795 (Version 1)
Quarter: 2015Q3

REPORT INFORMATION
  Report Type: Spontaneous
  Country: US (occurrence: US)
  Receive Date: 20150723
  Receipt Date: 20150723
  Transmission Date: 20151125
  Serious: Yes (Hospitalization)
  Sender: FDA-Public Use
  Company Number: US-ASTRAZENECA-2015SE70789

PATIENT
  Age: 74 Year
  Sex: Male
  Weight: 72.1 kg

DRUGS (9)
  1. ISOSORBIDE. [Concomitant]
     Active Substance: ISOSORBIDE
     Route: 048
  2. PREVACID [Concomitant]
     Active Substance: LANSOPRAZOLE
     Route: 048
  3. LISINOPRIL. [Suspect]
     Active Substance: LISINOPRIL
     Route: 048
  4. XARELTO [Concomitant]
     Active Substance: RIVAROXABAN
     Route: 048
  5. AMIODARONE [Concomitant]
     Active Substance: AMIODARONE
     Route: 048
  6. PLAVIX [Concomitant]
     Active Substance: CLOPIDOGREL BISULFATE
     Indication: MYOCARDIAL INFARCTION
     Route: 048
  7. CRESTOR [Suspect]
     Active Substance: ROSUVASTATIN CALCIUM
     Indication: BLOOD CHOLESTEROL INCREASED
     Dosage: DAILY
     Route: 048
     Dates: start: 2014, end: 2014
  8. LASIX [Concomitant]
     Active Substance: FUROSEMIDE
     Route: 048
  9. COREG [Concomitant]
     Active Substance: CARVEDILOL
     Dosage: DAILY
     Route: 048

REACTIONS (5)
  - Exfoliative rash [Unknown]
  - Device related infection [Unknown]
  - Haemorrhage [Unknown]
  - Blood glucose increased [Unknown]
  - Blister [Unknown]

NARRATIVE: CASE EVENT DATE: 2014
